FAERS Safety Report 10844363 (Version 2)
Quarter: 2015Q1

REPORT INFORMATION
  Report Type: Spontaneous
  Country: CN (occurrence: CN)
  Receive Date: 20150220
  Receipt Date: 20150226
  Transmission Date: 20150721
  Serious: Yes (Other)
  Sender: FDA-Public Use
  Company Number: CN-ELI_LILLY_AND_COMPANY-CN201502005290

PATIENT
  Age: 18 Month
  Weight: 10 kg

DRUGS (1)
  1. CECLOR [Suspect]
     Active Substance: CEFACLOR
     Indication: NASOPHARYNGITIS
     Dosage: UNK, TID
     Route: 048

REACTIONS (2)
  - Weight increased [Unknown]
  - Rash [Unknown]
